FAERS Safety Report 8407319-8 (Version None)
Quarter: 2012Q2

REPORT INFORMATION
  Report Type: 
  Country: None (occurrence: None)
  Receive Date: 20120604
  Receipt Date: 20120529
  Transmission Date: 20120825
  Serious: Yes (Other)
  Sender: FDA-Public Use
  Company Number: BR-PFIZER INC-2012129729

PATIENT
  Age: 59 Year
  Sex: Male
  Weight: 94 kg

DRUGS (6)
  1. VIAGRA [Suspect]
     Dosage: 50 MG,
     Route: 048
     Dates: start: 20111001
  2. INSULIN [Concomitant]
     Indication: DIABETES MELLITUS
  3. LEVOTHYROXINE SODIUM [Concomitant]
     Indication: HYPOTHYROIDISM
  4. ENALAPRIL [Concomitant]
     Indication: HYPERTENSION
  5. CAVERJECT [Suspect]
     Indication: ERECTILE DYSFUNCTION
     Route: 017
  6. METFORMIN [Concomitant]
     Indication: DIABETES MELLITUS

REACTIONS (4)
  - PENIS DISORDER [None]
  - PENILE PAIN [None]
  - HYPERGLYCAEMIA [None]
  - ERECTILE DYSFUNCTION [None]
